FAERS Safety Report 6348429-9 (Version None)
Quarter: 2009Q3

REPORT INFORMATION
  Report Type: 
  Country: None (occurrence: None)
  Receive Date: 20090911
  Receipt Date: 20090904
  Transmission Date: 20100115
  Serious: Yes (Hospitalization)
  Sender: FDA-Public Use
  Company Number: JP-BIOGENIDEC-2007BI010676

PATIENT
  Age: 51 Year
  Sex: Female

DRUGS (10)
  1. AVONEX [Suspect]
     Indication: RELAPSING-REMITTING MULTIPLE SCLEROSIS
     Route: 030
     Dates: start: 20070214, end: 20070221
  2. AVONEX [Suspect]
     Route: 030
     Dates: start: 20080228, end: 20080923
  3. METHYCOBAL [Concomitant]
     Dates: start: 20060517
  4. LIPOVAS [Concomitant]
     Dates: start: 20050401
  5. MARZULENE S [Concomitant]
     Dates: start: 20070214
  6. LENDORMIN D [Concomitant]
     Dates: start: 20071030
  7. GASTER D [Concomitant]
     Dates: start: 20080202, end: 20080206
  8. PRIDOL [Concomitant]
     Dates: start: 20080202, end: 20080206
  9. BRUFEN [Concomitant]
     Dates: start: 20070214, end: 20071010
  10. LOXONIN [Concomitant]
     Dates: start: 20070425, end: 20070523

REACTIONS (4)
  - BLINDNESS UNILATERAL [None]
  - BLOOD ALKALINE PHOSPHATASE ABNORMAL [None]
  - INFLUENZA LIKE ILLNESS [None]
  - MULTIPLE SCLEROSIS RELAPSE [None]
